FAERS Safety Report 25225598 (Version 1)
Quarter: 2025Q2

REPORT INFORMATION
  Report Type: Report from Study
  Country: CA (occurrence: CA)
  Receive Date: 20250422
  Receipt Date: 20250422
  Transmission Date: 20250717
  Serious: Yes (Death, Other)
  Sender: PFIZER
  Company Number: CA-PFIZER INC-2020411116

PATIENT
  Age: 80 Year
  Sex: Male

DRUGS (7)
  1. PAMIDRONATE DISODIUM [Suspect]
     Active Substance: PAMIDRONATE DISODIUM
     Route: 065
  2. DEXAMETHASONE [Suspect]
     Active Substance: DEXAMETHASONE
     Indication: Plasma cell myeloma
     Route: 065
  3. IXAZOMIB [Suspect]
     Active Substance: IXAZOMIB
     Indication: Plasma cell myeloma
     Route: 048
  4. IXAZOMIB [Suspect]
     Active Substance: IXAZOMIB
     Indication: Plasma cell myeloma
     Route: 048
  5. IXAZOMIB [Suspect]
     Active Substance: IXAZOMIB
     Route: 048
  6. LENALIDOMIDE [Concomitant]
     Active Substance: LENALIDOMIDE
  7. LENALIDOMIDE [Concomitant]
     Active Substance: LENALIDOMIDE
     Route: 065

REACTIONS (6)
  - Death [Fatal]
  - Infection [Fatal]
  - Osteomyelitis [Fatal]
  - Osteonecrosis of jaw [Fatal]
  - Oral infection [Fatal]
  - Neuropathy peripheral [Fatal]
